FAERS Safety Report 5831115-9 (Version None)
Quarter: 2008Q3

REPORT INFORMATION
  Report Type: 
  Country: None (occurrence: None)
  Receive Date: 20080801
  Receipt Date: 20080410
  Transmission Date: 20090109
  Serious: No
  Sender: FDA-Public Use
  Company Number: US-BRISTOL-MYERS SQUIBB COMPANY-14146880

PATIENT
  Age: 67 Year
  Sex: Female

DRUGS (1)
  1. COUMADIN [Suspect]
     Dosage: 1 DOSAGE FORM = 15MG FOR 4 NIGHTS AND 12.5MG FOR 3 NIGHTS

REACTIONS (1)
  - INTERNATIONAL NORMALISED RATIO ABNORMAL [None]
